FAERS Safety Report 14567787 (Version 1)
Quarter: 2018Q1

REPORT INFORMATION
  Report Type: Spontaneous
  Country: DE (occurrence: DE)
  Receive Date: 20180223
  Receipt Date: 20180223
  Transmission Date: 20180509
  Serious: Yes (Hospitalization, Other)
  Sender: FDA-Public Use
  Company Number: DE-BRISTOL-MYERS SQUIBB COMPANY-BMS-2016-060041

PATIENT
  Sex: Male

DRUGS (2)
  1. LITALIR [Suspect]
     Active Substance: HYDROXYUREA
     Indication: PRODUCT USED FOR UNKNOWN INDICATION
     Dosage: 1000 MG, QD
     Route: 048
     Dates: end: 20160714
  2. LITALIR [Suspect]
     Active Substance: HYDROXYUREA
     Indication: THROMBOCYTOSIS
     Dosage: 1500 MG, UNK
     Route: 048

REACTIONS (3)
  - Skin ulcer [Not Recovered/Not Resolved]
  - Pain [Recovered/Resolved]
  - Pseudomonas infection [Unknown]

NARRATIVE: CASE EVENT DATE: 2015
